FAERS Safety Report 6774801-9 (Version None)
Quarter: 2010Q2

REPORT INFORMATION
  Report Type: 
  Country: None (occurrence: None)
  Receive Date: 20100615
  Receipt Date: 20100615
  Transmission Date: 20101027
  Serious: No
  Sender: FDA-Public Use
  Company Number: None

PATIENT
  Sex: Male

DRUGS (1)
  1. MORPHINE [Suspect]
     Indication: PAIN
     Dosage: PCA IV DRIP
     Route: 041

REACTIONS (6)
  - BLOOD PH DECREASED [None]
  - BREATH SOUNDS ABNORMAL [None]
  - DYSPNOEA [None]
  - LETHARGY [None]
  - NO THERAPEUTIC RESPONSE [None]
  - PCO2 INCREASED [None]
